FAERS Safety Report 6989039-X (Version None)
Quarter: 2010Q3

REPORT INFORMATION
  Report Type: 
  Country: None (occurrence: None)
  Receive Date: 20100916
  Receipt Date: 20091012
  Transmission Date: 20110219
  Serious: Yes (Other)
  Sender: FDA-Public Use
  Company Number: DE-PFIZER INC-2009208421

PATIENT
  Sex: Female

DRUGS (8)
  1. LYRICA [Suspect]
     Indication: POLYNEUROPATHY
     Dosage: 50 MG, 2X/DAY
     Route: 048
     Dates: start: 20080101, end: 20090101
  2. LYRICA [Suspect]
     Dosage: 75 MG, 2X/DAY
     Route: 048
     Dates: start: 20090101
  3. ANASTROZOLE [Concomitant]
     Indication: BREAST CANCER
     Dosage: UNK
  4. CORTISONE [Concomitant]
     Indication: SJOGREN'S SYNDROME
     Dosage: UNK
  5. NALOXONE HYDROCHLORIDE/TILIDINE HYDROCHLORIDE [Concomitant]
     Dosage: 100 UNK, 2X/DAY
  6. RIFUN [Concomitant]
     Dosage: 40 UNK, 1X/DAY
  7. DECORTIN-H [Concomitant]
     Dosage: UNK
  8. ALFACALCIDOL [Concomitant]
     Dosage: 0.25 UNK, 2X/DAY

REACTIONS (12)
  - BREAST PAIN [None]
  - DIZZINESS [None]
  - DRY MOUTH [None]
  - DYSURIA [None]
  - INCREASED APPETITE [None]
  - NASAL DRYNESS [None]
  - NEURALGIA [None]
  - RENAL IMPAIRMENT [None]
  - RETINAL HAEMORRHAGE [None]
  - URINE FLOW DECREASED [None]
  - VISUAL IMPAIRMENT [None]
  - WEIGHT INCREASED [None]
